FAERS Safety Report 25110001 (Version 2)
Quarter: 2025Q1

REPORT INFORMATION
  Report Type: Spontaneous
  Country: CN (occurrence: CN)
  Receive Date: 20250324
  Receipt Date: 20250327
  Transmission Date: 20250409
  Serious: No
  Sender: ARGENX BVBA
  Company Number: CN-ARGENX-2025-ARGX-CN003378

PATIENT

DRUGS (2)
  1. VYVGART [Suspect]
     Active Substance: EFGARTIGIMOD ALFA-FCAB
     Indication: Myasthenia gravis
     Dosage: 400 MG, 1/WEEK, (COMBINED WITH 0.9% SODIUM CHLORIDE INJECTION 100ML ONCE A WEEK)
     Route: 042
     Dates: start: 20250228
  2. SODIUM CHLORIDE [Concomitant]
     Active Substance: SODIUM CHLORIDE
     Indication: Myasthenia gravis
     Dosage: 100 ML, 1/WEEK
     Route: 042
     Dates: start: 20250228

REACTIONS (1)
  - Rash erythematous [Recovering/Resolving]

NARRATIVE: CASE EVENT DATE: 20250307
